FAERS Safety Report 7041092-3 (Version None)
Quarter: 2010Q3

REPORT INFORMATION
  Report Type: 
  Country: None (occurrence: None)
  Receive Date: 20100929
  Receipt Date: 20100611
  Transmission Date: 20110219
  Serious: No
  Sender: FDA-Public Use
  Company Number: US-WYE-H15628410

PATIENT
  Age: 52 Year
  Sex: Female
  Weight: 72.64 kg

DRUGS (3)
  1. PRISTIQ [Suspect]
     Indication: DEPRESSION
     Dosage: 50 MG 1X PER 1 DAY, ORAL
     Route: 048
     Dates: start: 20090101
  2. LISINOPRIL [Concomitant]
  3. CLONIDINE [Concomitant]

REACTIONS (2)
  - ANIMAL BITE [None]
  - MEDICATION RESIDUE [None]
